FAERS Safety Report 25925151 (Version 2)
Quarter: 2025Q4

REPORT INFORMATION
  Report Type: Report from Study
  Country: US (occurrence: US)
  Receive Date: 20251015
  Receipt Date: 20251021
  Transmission Date: 20260117
  Serious: Yes (Other)
  Sender: NOVARTIS
  Company Number: US-002147023-NVSC2025US158378

PATIENT
  Age: 70 Year
  Sex: Female
  Weight: 51.1 kg

DRUGS (3)
  1. LAMPRENE [Suspect]
     Active Substance: CLOFAZIMINE
     Indication: Mycobacterium avium complex infection
     Dosage: 100 MG, QD (LAST DATE OF DOSE TAKEN PRIOR TO AE WAS ON 06 OCT 2025)
     Route: 048
     Dates: start: 20250825
  2. AZITHROMYCIN [Concomitant]
     Active Substance: AZITHROMYCIN
     Indication: Mycobacterium avium complex infection
     Dosage: 250 MG
     Route: 065
     Dates: start: 20241105, end: 20251005
  3. ETHAMBUTOL [Concomitant]
     Active Substance: ETHAMBUTOL HYDROCHLORIDE
     Indication: Mycobacterium avium complex infection
     Dosage: 400 MG
     Route: 065
     Dates: start: 20241105, end: 20251005

REACTIONS (7)
  - Alanine aminotransferase increased [Not Recovered/Not Resolved]
  - Aspartate aminotransferase increased [Not Recovered/Not Resolved]
  - Blood alkaline phosphatase increased [Not Recovered/Not Resolved]
  - Illness [Unknown]
  - Cough [Unknown]
  - Pain [Unknown]
  - Amylase increased [Unknown]

NARRATIVE: CASE EVENT DATE: 20250929
